FAERS Safety Report 11315399 (Version 3)
Quarter: 2020Q2

REPORT INFORMATION
  Report Type: Spontaneous
  Country: CA (occurrence: CA)
  Receive Date: 20150728
  Receipt Date: 20200605
  Transmission Date: 20200713
  Serious: Yes (Hospitalization)
  Sender: FDA-Public Use
  Company Number: CA-ROCHE-1611796

PATIENT
  Age: 46 Year
  Sex: Female
  Weight: 73 kg

DRUGS (17)
  1. FLUOROURACIL. [Concomitant]
     Active Substance: FLUOROURACIL
     Route: 042
  2. LEUCOVORIN [FOLINIC ACID] [Suspect]
     Active Substance: LEUCOVORIN
     Route: 042
  3. ELOXATIN [Suspect]
     Active Substance: OXALIPLATIN
     Indication: COLON CANCER
     Dosage: THERAPY DURATION: 1 DAY
     Route: 042
  4. IRINOTECAN [Suspect]
     Active Substance: IRINOTECAN
     Indication: PRODUCT USED FOR UNKNOWN INDICATION
     Route: 042
  5. DEXAMETHASONE. [Suspect]
     Active Substance: DEXAMETHASONE
     Dosage: THERAPY DURATIONL 2 DAYS
     Route: 048
  6. FLUOROURACIL. [Suspect]
     Active Substance: FLUOROURACIL
     Route: 065
  7. LEUCOVORIN [FOLINIC ACID] [Suspect]
     Active Substance: LEUCOVORIN
     Route: 065
  8. ELOXATIN [Suspect]
     Active Substance: OXALIPLATIN
     Dosage: THERAPY DURATION: 1 DAY
     Route: 042
  9. PROCHLORAZINE [Concomitant]
     Route: 065
  10. APREPITANT. [Concomitant]
     Active Substance: APREPITANT
     Route: 048
  11. ELOXATIN [Suspect]
     Active Substance: OXALIPLATIN
     Route: 042
  12. LEUCOVORIN [FOLINIC ACID] [Suspect]
     Active Substance: LEUCOVORIN
     Indication: PRODUCT USED FOR UNKNOWN INDICATION
     Route: 065
  13. DEXAMETHASONE. [Suspect]
     Active Substance: DEXAMETHASONE
     Dosage: THERAPY DURATION: 1 DAY
     Route: 042
  14. AVASTIN [Suspect]
     Active Substance: BEVACIZUMAB
     Indication: COLORECTAL CANCER METASTATIC
     Dosage: THERAPY DURATION: 301 DAYS
     Route: 042
  15. FLUOROURACIL. [Suspect]
     Active Substance: FLUOROURACIL
     Indication: PRODUCT USED FOR UNKNOWN INDICATION
     Route: 065
  16. DEXAMETHASONE. [Suspect]
     Active Substance: DEXAMETHASONE
     Indication: PROPHYLAXIS OF NAUSEA AND VOMITING
     Dosage: THERAPY DURATION: 1 DAY
     Route: 065
  17. GRANISETRON [Concomitant]
     Active Substance: GRANISETRON
     Route: 042

REACTIONS (4)
  - Disease progression [Unknown]
  - Toxicity to various agents [Unknown]
  - Pancreatitis acute [Unknown]
  - Diabetic ketoacidosis [Unknown]
